FAERS Safety Report 12668540 (Version 1)
Quarter: 2016Q3

REPORT INFORMATION
  Report Type: Spontaneous
  Country: FR (occurrence: FR)
  Receive Date: 20160819
  Receipt Date: 20160819
  Transmission Date: 20161109
  Serious: Yes (Hospitalization)
  Sender: FDA-Public Use
  Company Number: FR-009507513-1608FRA010324

PATIENT
  Age: 26 Year
  Sex: Female
  Weight: 65 kg

DRUGS (3)
  1. HOLOXAN [Suspect]
     Active Substance: IFOSFAMIDE
     Indication: URINARY BLADDER SARCOMA
     Dosage: 3280 MG PER CYCLE
     Route: 042
     Dates: start: 20160803, end: 20160804
  2. DOXORUBICIN [Concomitant]
     Active Substance: DOXORUBICIN
     Dosage: IV INFUSION
     Route: 042
     Dates: start: 20160803
  3. EMEND [Suspect]
     Active Substance: APREPITANT
     Indication: VOMITING
     Dosage: UNK
     Route: 048
     Dates: start: 20160803

REACTIONS (1)
  - Encephalopathy [Unknown]

NARRATIVE: CASE EVENT DATE: 20160805
